FAERS Safety Report 9632700 (Version 2)
Quarter: 2013Q4

REPORT INFORMATION
  Report Type: Spontaneous
  Country: US (occurrence: US)
  Receive Date: 20131018
  Receipt Date: 20131018
  Transmission Date: 20140711
  Serious: Yes (Hospitalization, Disabling, Other)
  Sender: FDA-Public Use
  Company Number: US-009507513-1008USA04179

PATIENT
  Sex: Male

DRUGS (2)
  1. FOSAMAX [Suspect]
     Indication: OSTEOPOROSIS
     Dosage: UNK
     Route: 048
     Dates: start: 200104, end: 2008
  2. ALENDRONATE SODIUM [Suspect]
     Dosage: UNK
     Route: 048
     Dates: start: 2009, end: 2010

REACTIONS (14)
  - Femur fracture [Unknown]
  - Femur fracture [Unknown]
  - Fall [Unknown]
  - Fracture [Unknown]
  - Tibia fracture [Unknown]
  - Osteonecrosis of jaw [Unknown]
  - Back pain [Not Recovered/Not Resolved]
  - Arthralgia [Not Recovered/Not Resolved]
  - Gait disturbance [Unknown]
  - Fracture nonunion [Unknown]
  - Foot fracture [Unknown]
  - Ankle fracture [Unknown]
  - Tooth disorder [Unknown]
  - Foot fracture [Unknown]
